FAERS Safety Report 10185041 (Version 2)
Quarter: 2014Q2

REPORT INFORMATION
  Report Type: Report from Study
  Country: AR (occurrence: AR)
  Receive Date: 20140521
  Receipt Date: 20140521
  Transmission Date: 20141212
  Serious: Yes (Hospitalization, Other)
  Sender: FDA-Public Use
  Company Number: PHHO2011AR15806

PATIENT
  Age: 53 Year
  Sex: Male
  Weight: 75.2 kg

DRUGS (4)
  1. SOM230 [Suspect]
     Indication: ACROMEGALY
     Dosage: CORE PHASE
     Route: 030
     Dates: start: 20091013
  2. SANDOSTATIN LAR [Suspect]
     Indication: ACROMEGALY
     Dosage: 60 MG, UNK(EXTENSION BLINDED PHASE)
     Dates: start: 20100913
  3. ENALAPRIL [Concomitant]
     Indication: HYPERTENSION
     Dosage: 10 MG, QD
     Route: 048
     Dates: start: 20090318, end: 20110912
  4. METFORMIN [Concomitant]
     Indication: HYPERGLYCAEMIA
     Dosage: 750 MG, BID
     Route: 048
     Dates: start: 20091209, end: 20110912

REACTIONS (5)
  - Angina unstable [Not Recovered/Not Resolved]
  - Myocardial ischaemia [Not Recovered/Not Resolved]
  - Acute myocardial infarction [Recovered/Resolved with Sequelae]
  - Diabetes mellitus [Not Recovered/Not Resolved]
  - Concomitant disease progression [Not Recovered/Not Resolved]
